FAERS Safety Report 15440779 (Version 1)
Quarter: 2018Q3

REPORT INFORMATION
  Report Type: Report from Study
  Country: CA (occurrence: CA)
  Receive Date: 20180928
  Receipt Date: 20180928
  Transmission Date: 20181010
  Serious: Yes (Other)
  Sender: FDA-Public Use
  Company Number: CA-JNJFOC-20180925564

PATIENT
  Sex: Male
  Weight: 77.11 kg

DRUGS (2)
  1. STELARA [Suspect]
     Active Substance: USTEKINUMAB
     Indication: PSORIASIS
     Dosage: STRENGTH = 45 MG
     Route: 058
     Dates: start: 20150901
  2. METFORMIN [Suspect]
     Active Substance: METFORMIN HYDROCHLORIDE
     Indication: DIABETES MELLITUS
     Dosage: STRENGTH = 500 MG
     Route: 048
     Dates: start: 201801

REACTIONS (7)
  - Renal neoplasm [Unknown]
  - Fall [Unknown]
  - Fatigue [Recovering/Resolving]
  - Weight decreased [Unknown]
  - Rib fracture [Unknown]
  - Hypersomnia [Unknown]
  - Decreased appetite [Unknown]

NARRATIVE: CASE EVENT DATE: 2017
